FAERS Safety Report 4718277-1 (Version None)
Quarter: 2005Q3

REPORT INFORMATION
  Report Type: 
  Country: None (occurrence: None)
  Receive Date: 20050719
  Receipt Date: 20050408
  Transmission Date: 20060218
  Serious: Yes (Other)
  Sender: FDA-Public Use
  Company Number: 2005035222

PATIENT
  Age: 60 Year
  Sex: Male

DRUGS (6)
  1. CELEBREX [Suspect]
     Indication: ARTHRITIS
     Dosage: 200 MG (200 MG, 1 IN 1 D), ORAL
     Route: 048
     Dates: start: 20030113, end: 20050221
  2. CELEBREX [Suspect]
     Indication: BURSITIS
     Dosage: 200 MG (200 MG, 1 IN 1 D), ORAL
     Route: 048
     Dates: start: 20030113, end: 20050221
  3. CELEBREX [Suspect]
     Indication: TENDONITIS
     Dosage: 200 MG (200 MG, 1 IN 1 D), ORAL
     Route: 048
     Dates: start: 20030113, end: 20050221
  4. DIOVAN HCT [Concomitant]
  5. CETIRIZINE HCL [Concomitant]
  6. LEVOFLOXACIN [Concomitant]

REACTIONS (5)
  - BLOOD CREATININE INCREASED [None]
  - BLOOD UREA INCREASED [None]
  - DRUG HYPERSENSITIVITY [None]
  - HAEMATURIA [None]
  - PROSTATITIS [None]
